FAERS Safety Report 5851542-3 (Version None)
Quarter: 2008Q3

REPORT INFORMATION
  Report Type: 
  Country: None (occurrence: None)
  Receive Date: 20080820
  Receipt Date: 20080813
  Transmission Date: 20090109
  Serious: Yes (Hospitalization)
  Sender: FDA-Public Use
  Company Number: US-WYE-H05346808

PATIENT
  Sex: Male
  Weight: 96.6 kg

DRUGS (8)
  1. TYGACIL [Suspect]
     Indication: BURSITIS INFECTIVE
     Route: 042
     Dates: start: 20080726, end: 20080729
  2. INSULIN [Concomitant]
     Indication: DIABETES MELLITUS
     Dosage: SLIDING SCALE
  3. CARAFATE [Concomitant]
     Indication: GASTROINTESTINAL HAEMORRHAGE
     Dosage: UNKNOWN
     Route: 048
  4. SPIRONOLACTONE [Concomitant]
     Indication: HYPERTENSION
     Dosage: 25 MG DAILY
     Route: 048
  5. SPIRONOLACTONE [Concomitant]
     Indication: CARDIAC FAILURE CONGESTIVE
  6. FERROUS SULFATE TAB [Concomitant]
     Indication: ANAEMIA
     Dosage: 5 GR DAILY
     Route: 048
  7. AMARYL [Concomitant]
     Indication: DIABETES MELLITUS
     Dosage: 4 MG DAILY
     Route: 048
  8. NEXIUM [Concomitant]
     Indication: GASTROINTESTINAL HAEMORRHAGE
     Dosage: 40 MG DAILY
     Route: 048

REACTIONS (2)
  - BLOOD GLUCOSE DECREASED [None]
  - CONFUSIONAL STATE [None]
